FAERS Safety Report 11674413 (Version 1)
Quarter: 2015Q4

REPORT INFORMATION
  Report Type: Spontaneous
  Country: US (occurrence: US)
  Receive Date: 20151028
  Receipt Date: 20151028
  Transmission Date: 20160304
  Serious: Yes (Hospitalization)
  Sender: FDA-Public Use
  Company Number: US-PFIZER INC-2015350336

PATIENT
  Age: 66 Year
  Sex: Female

DRUGS (1)
  1. SUTENT [Suspect]
     Active Substance: SUNITINIB MALATE
     Indication: RENAL CANCER
     Dosage: 12.5 MG, 4X/DAY, 4 WEEKS ON AND 2 WEEKS OFF
     Route: 048
     Dates: start: 201509, end: 20151005

REACTIONS (5)
  - Hepatic enzyme increased [Unknown]
  - White blood cell count decreased [Unknown]
  - Blood pressure increased [Recovered/Resolved]
  - Hepatotoxicity [Unknown]
  - Pneumonia [Unknown]
